FAERS Safety Report 7287361-3 (Version None)
Quarter: 2011Q1

REPORT INFORMATION
  Report Type: 
  Country: None (occurrence: None)
  Receive Date: 20110211
  Receipt Date: 20110203
  Transmission Date: 20110831
  Serious: Yes (Other)
  Sender: FDA-Public Use
  Company Number: US-JNJFOC-20110202492

PATIENT
  Sex: Female
  Weight: 90.72 kg

DRUGS (4)
  1. FENTANYL-100 [Suspect]
     Indication: MIGRAINE
     Route: 062
  2. FENTANYL-100 [Suspect]
     Indication: ARTHRALGIA
     Route: 062
  3. FENTANYL-100 [Suspect]
     Indication: PAIN
     Route: 062
  4. FENTANYL CITRATE [Suspect]
     Indication: PRODUCT USED FOR UNKNOWN INDICATION
     Route: 062

REACTIONS (1)
  - ARTHROPATHY [None]
